FAERS Safety Report 4841805-2 (Version None)
Quarter: 2005Q4

REPORT INFORMATION
  Report Type: 
  Country: None (occurrence: None)
  Receive Date: 20051125
  Receipt Date: 20051107
  Transmission Date: 20060501
  Serious: Yes (Death)
  Sender: FDA-Public Use
  Company Number: 2005-BP-19733RO

PATIENT
  Age: 44 Year
  Sex: Female

DRUGS (1)
  1. LOPERAMIDE HCL [Suspect]

REACTIONS (8)
  - CONFUSIONAL STATE [None]
  - DEPRESSED LEVEL OF CONSCIOUSNESS [None]
  - HYPOTONIA [None]
  - INCOHERENT [None]
  - INTENTIONAL OVERDOSE [None]
  - LETHARGY [None]
  - MIOSIS [None]
  - PUPIL FIXED [None]
